FAERS Safety Report 10240714 (Version 3)
Quarter: 2015Q1

REPORT INFORMATION
  Report Type: Report from Study
  Country: US (occurrence: US)
  Receive Date: 20140617
  Receipt Date: 20150210
  Transmission Date: 20150720
  Serious: Yes (Death, Hospitalization)
  Sender: FDA-Public Use
  Company Number: US-SA-2014SA079205

PATIENT
  Age: 85 Year
  Sex: Male
  Weight: 38.1 kg

DRUGS (8)
  1. CARVEDILOL. [Concomitant]
     Active Substance: CARVEDILOL
  2. FINASTERIDE. [Concomitant]
     Active Substance: FINASTERIDE
  3. CEREZYME [Suspect]
     Active Substance: IMIGLUCERASE
     Indication: GAUCHER^S DISEASE
     Dosage: DOSE:115.4 UNIT(S)/KILOGRAM BODYWEIGHT
     Route: 041
     Dates: start: 200604, end: 201407
  4. GLIBENCLAMIDE [Concomitant]
     Active Substance: GLYBURIDE
  5. LASIX [Concomitant]
     Active Substance: FUROSEMIDE
  6. COLACE [Concomitant]
     Active Substance: DOCUSATE SODIUM
  7. IRON [Concomitant]
     Active Substance: IRON
  8. AGGRENOX [Concomitant]
     Active Substance: ASPIRIN\DIPYRIDAMOLE
     Dosage: 25/100

REACTIONS (4)
  - Pneumonia [Unknown]
  - Herpes zoster [Recovered/Resolved]
  - Chronic obstructive pulmonary disease [Recovered/Resolved]
  - Death [Fatal]

NARRATIVE: CASE EVENT DATE: 20140517
